FAERS Safety Report 8819946 (Version 1)
Quarter: 2012Q4

REPORT INFORMATION
  Report Type: 
  Country: US (occurrence: US)
  Receive Date: 20121001
  Receipt Date: 20121001
  Transmission Date: 20130627
  Serious: No
  Sender: FDA-Public Use
  Company Number: US-ASTRAZENECA-2012SE73886

PATIENT
  Age: 72 Year
  Sex: Female

DRUGS (2)
  1. SYMBICORT [Suspect]
     Dosage: TWO TIMES A DAY
     Route: 055
     Dates: start: 2010
  2. PROAIR [Concomitant]

REACTIONS (2)
  - Dysphonia [Not Recovered/Not Resolved]
  - Intentional drug misuse [Unknown]
